FAERS Safety Report 15629853 (Version 1)
Quarter: 2018Q4

REPORT INFORMATION
  Report Type: Spontaneous
  Country: US (occurrence: US)
  Receive Date: 20181117
  Receipt Date: 20181117
  Transmission Date: 20190205
  Serious: Yes (Other)
  Sender: FDA-Public Use
  Company Number: PHHY2018US141441

PATIENT

DRUGS (1)
  1. TASIGNA [Suspect]
     Active Substance: NILOTINIB
     Indication: CHORDOMA
     Dosage: 200 MG, BID
     Route: 065

REACTIONS (9)
  - Cerebrovascular accident [Unknown]
  - Intracranial mass [Unknown]
  - Calcinosis [Unknown]
  - Pineal neoplasm [Unknown]
  - Cerebral haemorrhage [Unknown]
  - Cerebral small vessel ischaemic disease [Unknown]
  - Meningioma [Unknown]
  - Cerebral ventricle dilatation [Unknown]
  - Product use in unapproved indication [Unknown]
